FAERS Safety Report 9841642 (Version 1)
Quarter: 2014Q1

REPORT INFORMATION
  Report Type: Spontaneous
  Country: US (occurrence: None)
  Receive Date: 20140123
  Receipt Date: 20140123
  Transmission Date: 20141002
  Serious: Yes (Life-Threatening, Hospitalization, Disabling, Other)
  Sender: FDA-Public Use
  Company Number: None

PATIENT
  Age: 57 Year
  Sex: Male

DRUGS (6)
  1. ENBREL [Suspect]
     Indication: RHEUMATOID ARTHRITIS
     Dates: start: 20120823, end: 20131007
  2. RANITIDINE [Concomitant]
  3. OXYCODONE [Concomitant]
  4. METHOTREXATE [Concomitant]
  5. DICLOFENAC [Concomitant]
  6. HYDROCHLOROTHIAZIDE [Concomitant]

REACTIONS (3)
  - Sialoadenitis [None]
  - Deafness unilateral [None]
  - B-cell lymphoma [None]
